FAERS Safety Report 10031535 (Version 2)
Quarter: 2014Q1

REPORT INFORMATION
  Report Type: Spontaneous
  Country: US (occurrence: US)
  Receive Date: 20140324
  Receipt Date: 20140324
  Transmission Date: 20141002
  Serious: Yes (Other)
  Sender: FDA-Public Use
  Company Number: US-PFIZER INC-2014079467

PATIENT
  Age: 30 Year
  Sex: Female

DRUGS (3)
  1. METHYLPREDNISOLONE ACETATE [Suspect]
     Indication: URTICARIA
     Dosage: 125 MG, UNK
     Route: 042
  2. PREDNISONE [Suspect]
     Indication: URTICARIA
     Dosage: 20 MG, 2X/DAY
     Route: 048
  3. PREDNISONE [Suspect]
     Dosage: 20 MG, DAILY
     Route: 048

REACTIONS (2)
  - Transplant failure [Unknown]
  - Hyperglycaemia [Recovering/Resolving]
